FAERS Safety Report 17903905 (Version 1)
Quarter: 2020Q2

REPORT INFORMATION
  Report Type: Spontaneous
  Country: US (occurrence: US)
  Receive Date: 20200617
  Receipt Date: 20200617
  Transmission Date: 20200714
  Serious: No
  Sender: FDA-Public Use
  Company Number: US-AUROBINDO-AUR-APL-2019-073715

PATIENT

DRUGS (2)
  1. CIPROFLOXACIN. [Suspect]
     Active Substance: CIPROFLOXACIN
     Indication: PRODUCT USED FOR UNKNOWN INDICATION
     Dosage: 2 DOSAGE FORM
     Route: 042
     Dates: start: 20191107
  2. METRONIDAZOLE. [Suspect]
     Active Substance: METRONIDAZOLE
     Indication: PRODUCT USED FOR UNKNOWN INDICATION
     Dosage: 2 DOSAGE FORM
     Route: 042
     Dates: start: 20191107

REACTIONS (10)
  - Paraesthesia [Recovered/Resolved]
  - Burning sensation [Unknown]
  - Dizziness [Unknown]
  - Feeling abnormal [Unknown]
  - Inflammation [Unknown]
  - Joint noise [Unknown]
  - Feeling hot [Unknown]
  - Hypoaesthesia [Recovered/Resolved]
  - Muscular weakness [Unknown]
  - Arthralgia [Unknown]
